FAERS Safety Report 8147241-8 (Version None)
Quarter: 2012Q1

REPORT INFORMATION
  Report Type: 
  Country: None (occurrence: None)
  Receive Date: 20120218
  Receipt Date: 20110308
  Transmission Date: 20120608
  Serious: No
  Sender: FDA-Public Use
  Company Number: US-ALLERGAN-1101158US

PATIENT
  Age: 44 Year
  Sex: Female
  Weight: 61.224 kg

DRUGS (2)
  1. BOTOX COSMETIC [Suspect]
     Indication: SKIN WRINKLING
     Dosage: 20 UNITS, SINGLE
     Route: 030
     Dates: start: 20080408, end: 20080408
  2. BOTOX COSMETIC [Suspect]
     Dosage: 24 UNITS, SINGLE
     Route: 030
     Dates: start: 20071024, end: 20071024

REACTIONS (1)
  - DYSPHAGIA [None]
